FAERS Safety Report 10251949 (Version 1)
Quarter: 2014Q2

REPORT INFORMATION
  Report Type: Report from Study
  Country: JP (occurrence: None)
  Receive Date: 20140619
  Receipt Date: 20140619
  Transmission Date: 20141212
  Serious: Yes (Hospitalization, Other)
  Sender: FDA-Public Use
  Company Number: 2010JP001560

PATIENT
  Age: 21 Year
  Sex: Female
  Weight: 45 kg

DRUGS (75)
  1. PROGRAF [Suspect]
     Indication: LUPUS NEPHRITIS
     Route: 048
     Dates: start: 20081105, end: 20081202
  2. PREDNISOLONE [Suspect]
     Indication: LUPUS NEPHRITIS
     Route: 048
     Dates: end: 20090218
  3. METHYLPREDNISOLONE SODIUM SUCCINATE [Suspect]
     Indication: LUPUS NEPHRITIS
     Dates: start: 20120509, end: 20120509
  4. PREDNISOLONE SODIUM SUCCINATE [Suspect]
     Indication: LUPUS NEPHRITIS
     Dates: start: 20120716, end: 20120717
  5. PERSANTIN [Suspect]
     Indication: LUPUS NEPHRITIS
     Route: 048
     Dates: end: 20090303
  6. DIOVAN (VALSARTAN) [Concomitant]
  7. ZANTAC (RANITIDINE HYDROCHLORIDE) [Concomitant]
  8. FOSAMAC (ALENDRONATE SODIUM) [Concomitant]
  9. KAKKON-TO (HERBAL EXTRACTS NOS) [Concomitant]
  10. PL GRAN. (CAFFEINE, PARACETAMOL, PROMETHAZINE METHYLENE DISALICYLATE, SALICYLAMIDE) [Concomitant]
  11. FLOMAX (CEFCAPENE PIVOXIL HYDROCHLORIDE) [Concomitant]
  12. FERROMIA (FERROUS SODIUM CITRATE) [Concomitant]
  13. HYALEIN (HYALURONATE SODIUM) [Concomitant]
  14. LOXONIN (LOXOPROFEN SODIUM) [Concomitant]
  15. GASLON N (IRSOGLADINE MALEATE)ORODISPERSIBLE CR TABLET [Concomitant]
  16. BREDININ (MIZORIBINE) [Concomitant]
  17. EVOXAC (CEVIMELINE HYDROCHLORIDE) [Concomitant]
  18. MIYA BM (CLOSTRIDIUM BUTYRICUM) [Concomitant]
  19. CHLOMY (CHLORAMPHENICOL) [Concomitant]
  20. RINDERON (BETAMETHASONE SODIUM PHOSPHATE) [Concomitant]
  21. TARIVID (OFLOXACIN) [Concomitant]
  22. THIATON (TIQUIZIUM BROMIDE) [Concomitant]
  23. ENDOXAN /00021102/ (CYCLOPHOSPHAMIDE MONOHYDRATE) [Concomitant]
  24. MYTEAR /00629201/ (BORIC ACID) [Concomitant]
  25. BONOTEO (MINODRONIC ACID) [Concomitant]
  26. DIART (AZOSEMIDE) [Concomitant]
  27. HYALEIN MINI (HYALURONATE SODIUM) [Concomitant]
  28. PERDIPINE (NICARDIPINE) [Concomitant]
  29. GASTER (FAMOTIDINE) [Concomitant]
  30. PRIMPERAN (METOCLOPRAMIDE) [Concomitant]
  31. PENTAGIN /00052102/ (PENTAZOCINE LACTATE) [Concomitant]
  32. GLYCEREB (FRUCTOSE, GLYCEROL) [Concomitant]
  33. VEEN D (CALCIUM CHLORIDE DIHYDRATE, GLUCOSE, POTASSIUM CHLORIDE, SODIUM ACETATE, SODIUM CHLORIDE) [Concomitant]
  34. DORMICUM (MIDAZOLAM) [Concomitant]
  35. CEFAMEZIN (CEFAZOLIN) [Concomitant]
  36. ALBUMINAR (ALBUMIN HUMAN) [Concomitant]
  37. METILON (METAMIZOLE SODIUM) [Concomitant]
  38. PENTCILLIN (PIPERACILLIN SODIUM) [Concomitant]
  39. OMEPRAZOL /00661202/ (OMEPRAZOLE SODIUM) [Concomitant]
  40. VEEN-F (CALCIUM CHLORIDE, MAGNESIUM CHLORIDE, POTASSIUM CHLORIDE, SODIUM ACETATE, SODIUM CHLORIDE) [Concomitant]
  41. PHYSIO (CALCIUM GLUCONATE, GLUCOSE, MAGNESIUM CHLORIDE, POTASSIUM CHLORIDE, POTASSIUM PHOSPHATE MONOBASIC, SODIUM ACETATE, SODIUM CHLORIDE) [Concomitant]
  42. HANP (CARPERITIDE) [Concomitant]
  43. LASIX /00032601/ (FUROSEMIDE) UNK, UNKUNK [Concomitant]
  44. CATABON (DOPAMINE HYDROCHLORIDE) [Concomitant]
  45. GLOVENIN (IMMUNOGLOBULIN HUMAN NORMAL) [Concomitant]
  46. PANTOSIN (PANTETHINE) [Concomitant]
  47. GLUCOSE (GLUCOSE) [Concomitant]
  48. NEOAMIYU (ALANINE, ARGININE, ASPARTIC ACID, GLUTAMIC ACID, GLYCINE, HISTIDINE, ISOLEUCINE, LEUCINE, LYSINE ACETATE, METHIONINE, PHENYLALANINE, PROLINE, SERINE, THREONINE, TRYPTOPHAN, TYROSINE VALINE) [Concomitant]
  49. NEOLAMIN 3B /00520001/ (HYDROXOCOBALAMIN ACETATE, PYRIDOXAL PHOSPHATE, THIAMINE DISULFIDE) [Concomitant]
  50. ASPARA POTASSIUM (POTASSIUM ASPARTATE) [Concomitant]
  51. NEXIUM /01479302/ (ESOMEPRAZOLE MAGNESIUM) [Concomitant]
  52. NU-LOTAN (LOSARTAN POTASSIUM) [Concomitant]
  53. ASPARA K (POTASSIUM ASPARTATE) [Concomitant]
  54. LIPITOR (ATORVASTATIN) [Concomitant]
  55. AMLODIN (AMLODIPINE BESILATE) [Concomitant]
  56. ADONA /00056903/ (CARBAZOCHROME SODIUM SULFONATE) [Concomitant]
  57. UROMITEXAN (MESNA) [Concomitant]
  58. PERSANTIN-L (DIPYRIDAMOLE) [Concomitant]
  59. ALFAROL (ALFACALCIDOL) [Concomitant]
  60. ALDACTONE A (SPIRONOLACTONE) [Concomitant]
  61. TANATRIL (IMIDAPRIL HYDROCHLORIDE) [Concomitant]
  62. BAKTAR (SULFAMETHOXAZOLE, TRIMETHOPRIM) TABLET [Concomitant]
  63. VENOGLOBULIN (IMMUNOGLOBULIN HUMAN NORMAL) [Concomitant]
  64. TAKEPRON (LANSOPRAZOLE) [Concomitant]
  65. SENNOSIDE /00571901/ (SENNOSIDE A+B) [Concomitant]
  66. FLUITRAN (TRICHLORMETHIAZIDE) [Concomitant]
  67. WYTENS /00658402/ (GUANABENZ ACETATE) [Concomitant]
  68. EDIROL (ELDECALCITOL) [Concomitant]
  69. TRANSAMIN (TRANEXAMIC ACID) [Concomitant]
  70. MUCOSOLVAN (AMBROXOL HYDROCHLORIDE) [Concomitant]
  71. ALLEGRA (FEXOFENADINE HYDROCHLORIDE) [Concomitant]
  72. FESIN /00023550/ (SACCHARATED IRON OXIDE) [Concomitant]
  73. FEBURIC (FEBUXOSTAT) [Concomitant]
  74. ISODINE (POVIDONE-IODINE) [Concomitant]
  75. DIQUAS (DIQUAFOSOL TETRASODIUM) [Concomitant]

REACTIONS (12)
  - Iron deficiency anaemia [None]
  - Menorrhagia [None]
  - Blood creatine phosphokinase increased [None]
  - Hyperlipidaemia [None]
  - Hyperuricaemia [None]
  - Nasopharyngitis [None]
  - Gastroenteritis [None]
  - Otitis externa [None]
  - Osteonecrosis [None]
  - Subarachnoid haemorrhage [None]
  - Purpura [None]
  - Rhinitis allergic [None]
